FAERS Safety Report 20359122 (Version 1)
Quarter: 2022Q1

REPORT INFORMATION
  Report Type: Spontaneous
  Country: US (occurrence: US)
  Receive Date: 20220120
  Receipt Date: 20220120
  Transmission Date: 20220424
  Serious: No
  Sender: FDA-Public Use
  Company Number: US-TERSERA THERAPEUTICS LLC-2021TRS003354

PATIENT

DRUGS (3)
  1. PRIALT [Suspect]
     Active Substance: ZICONOTIDE ACETATE
     Indication: Product used for unknown indication
     Dosage: 1.14 UNK (CONCENTRATION: 3.6 MCG/ML)
     Route: 037
  2. CLONIDINE [Suspect]
     Active Substance: CLONIDINE
     Indication: Product used for unknown indication
     Dosage: 4.416 MG (CONCENTRATION: 13.9MG/ML)
     Route: 037
  3. CLONIDINE [Suspect]
     Active Substance: CLONIDINE
     Dosage: 143.1 MCG, QD (CONCENTRATION:  450MCG/ML)
     Route: 037

REACTIONS (5)
  - Implant site pain [Unknown]
  - Back pain [Unknown]
  - Cold sweat [Unknown]
  - Hyperhidrosis [Unknown]
  - Off label use [Unknown]
